FAERS Safety Report 8599072-2 (Version None)
Quarter: 2012Q3

REPORT INFORMATION
  Report Type: 
  Country: None (occurrence: None)
  Receive Date: 20120816
  Receipt Date: 20120807
  Transmission Date: 20120928
  Serious: Yes (Other)
  Sender: FDA-Public Use
  Company Number: BR-JNJFOC-20111010597

PATIENT
  Sex: Female
  Weight: 58 kg

DRUGS (10)
  1. ALL OTHER THERAPEUTICS [Concomitant]
     Indication: HYPERSENSITIVITY
     Dosage: THE USE IS NOT CONTINUOUS
     Route: 065
  2. REMICADE [Suspect]
     Indication: RHEUMATOID ARTHRITIS
     Route: 042
     Dates: start: 20061206
  3. PREDNISONE TAB [Concomitant]
     Indication: ANTIINFLAMMATORY THERAPY
     Route: 048
  4. FLEBOCORTID [Concomitant]
     Indication: PRURITUS
     Route: 065
  5. REMICADE [Suspect]
     Dosage: LAST INFUSION
     Route: 042
     Dates: start: 20120731
  6. FLEBOCORTID [Concomitant]
     Indication: PREMEDICATION
     Route: 065
  7. DICLOFENAC [Concomitant]
     Indication: ANTIINFLAMMATORY THERAPY
     Route: 048
  8. FLEBOCORTID [Concomitant]
     Indication: HYPERSENSITIVITY
     Route: 065
  9. ALENDRONATE SODIUM [Concomitant]
     Indication: OSTEOPOROSIS
     Dosage: THE TREATMENT IS NOT CONTINUOUS
     Route: 065
  10. CELEBREX [Concomitant]
     Indication: ANTIINFLAMMATORY THERAPY
     Dosage: THE USE IS SPORADIC, IT IS NOT CONTINUOUS
     Route: 065

REACTIONS (6)
  - SALIVARY GLAND ADENOMA [None]
  - PAROSMIA [None]
  - DEAFNESS UNILATERAL [None]
  - SJOGREN'S SYNDROME [None]
  - ACCIDENTAL EXPOSURE [None]
  - SKIN DISORDER [None]
